FAERS Safety Report 9547283 (Version 1)
Quarter: 2013Q2

REPORT INFORMATION
  Report Type: Spontaneous
  Country: US (occurrence: None)
  Receive Date: 20130524
  Receipt Date: 20130524
  Transmission Date: 20140414
  Serious: No
  Sender: FDA-Public Use
  Company Number: PHEH2012US024217

PATIENT
  Sex: Female
  Weight: 39 kg

DRUGS (11)
  1. GILENYA (FINGOLIMOD) CAPSULE [Suspect]
     Indication: MULTIPLE SCLEROSIS
     Route: 048
  2. BACLOFEN (BACLOFEN) [Concomitant]
  3. CYMBALTA (DULOXETINE HYDROCHLORIDE) [Concomitant]
  4. LYRICA (PREGABLIN) [Concomitant]
  5. NORVASC (AMLODIPINE BESILATE) [Concomitant]
  6. OXYCONTIN (OXYCODONE HYDROCHLORIDE) [Concomitant]
  7. PLAVIX (CLOPIDOGREL BISULFATE) [Concomitant]
  8. PROVIGIL (MODAFINIL) [Concomitant]
  9. TOPROL (METOPROLOL SUCCINATE) [Concomitant]
  10. VITAMIN B12 (CYANOCOBALAMIN) [Concomitant]
  11. ZOCOR (SIMVASTATIN) [Concomitant]

REACTIONS (1)
  - Influenza like illness [None]
